FAERS Safety Report 4305142-7 (Version None)
Quarter: 2004Q1

REPORT INFORMATION
  Report Type: 
  Country: None (occurrence: None)
  Receive Date: 20040225
  Receipt Date: 20040225
  Transmission Date: 20041129
  Serious: Yes (Hospitalization)
  Sender: FDA-Public Use
  Company Number: None

PATIENT
  Sex: Female

DRUGS (11)
  1. ARGATROBAN [Suspect]
     Indication: HEPARIN-INDUCED THROMBOCYTOPENIA
     Dosage: 0.5 MCG-2 MCG /KG/MIN
     Dates: start: 20031114, end: 20031115
  2. ALBUTEROL [Concomitant]
  3. AMPHOTERICIN B [Concomitant]
  4. CHLORAL HYDRATE [Concomitant]
  5. DIGOXIN [Concomitant]
  6. EPOGEN [Concomitant]
  7. LINEZOLID [Concomitant]
  8. LORAZEPAM [Concomitant]
  9. METOPROLOL [Concomitant]
  10. SUCRALFATE [Concomitant]
  11. HYDROMORPHONE [Concomitant]

REACTIONS (2)
  - ACTIVATED PARTIAL THROMBOPLASTIN TIME PROLONGED [None]
  - RECTAL HAEMORRHAGE [None]
